FAERS Safety Report 4427771-2 (Version None)
Quarter: 2004Q3

REPORT INFORMATION
  Report Type: 
  Country: None (occurrence: None)
  Receive Date: 20040816
  Receipt Date: 20040816
  Transmission Date: 20050211
  Serious: Yes (Life-Threatening)
  Sender: FDA-Public Use
  Company Number: None

PATIENT
  Age: 65 Year
  Sex: Male
  Weight: 116.1208 kg

DRUGS (2)
  1. LINEZOLID 600 MG PFIZER [Suspect]
     Indication: WOUND INFECTION
     Dosage: 600 MG TWICE DAIL ORAL
     Route: 048
     Dates: start: 20040723, end: 20040811
  2. COUMADIN [Concomitant]

REACTIONS (2)
  - GASTROINTESTINAL HAEMORRHAGE [None]
  - THROMBOCYTOPENIA [None]
